FAERS Safety Report 7886151-8 (Version None)
Quarter: 2011Q4

REPORT INFORMATION
  Report Type: 
  Country: None (occurrence: None)
  Receive Date: 20111102
  Receipt Date: 20110706
  Transmission Date: 20120403
  Serious: No
  Sender: FDA-Public Use
  Company Number: US-AMGEN-USASP2011034543

PATIENT
  Sex: Female

DRUGS (1)
  1. ENBREL [Suspect]
     Indication: RHEUMATOID ARTHRITIS
     Dosage: 50 MG, QWK
     Dates: start: 20080501

REACTIONS (13)
  - EAR INFECTION [None]
  - CARPAL TUNNEL SYNDROME [None]
  - FIBROMYALGIA [None]
  - JOINT DESTRUCTION [None]
  - HYPOAESTHESIA [None]
  - JOINT SWELLING [None]
  - GAIT DISTURBANCE [None]
  - ACNE [None]
  - OSTEOARTHRITIS [None]
  - MUSCULOSKELETAL STIFFNESS [None]
  - INSOMNIA [None]
  - STAPHYLOCOCCAL INFECTION [None]
  - SCAR [None]
